FAERS Safety Report 12782413 (Version 2)
Quarter: 2016Q4

REPORT INFORMATION
  Report Type: Report from Study
  Country: CA (occurrence: CA)
  Receive Date: 20160927
  Receipt Date: 20161017
  Transmission Date: 20170207
  Serious: Yes (Other)
  Sender: FDA-Public Use
  Company Number: CA-AMGEN-CANSL2016129525

PATIENT
  Age: 30 Year
  Sex: Female
  Weight: 50.8 kg

DRUGS (5)
  1. DEPO-MEDROL [Concomitant]
     Active Substance: METHYLPREDNISOLONE ACETATE
     Dosage: UNK
  2. TYLENOL [Concomitant]
     Active Substance: ACETAMINOPHEN
     Dosage: UNK
  3. COD LIVER OIL [Concomitant]
     Active Substance: COD LIVER OIL
     Dosage: UNK
  4. PRIMROSE OIL [Concomitant]
     Dosage: UNK
  5. ENBREL [Suspect]
     Active Substance: ETANERCEPT
     Indication: PSORIATIC ARTHROPATHY
     Dosage: 50 MG, QWK
     Route: 058
     Dates: start: 20151208

REACTIONS (6)
  - Abdominal pain [Unknown]
  - Microcytic anaemia [Unknown]
  - Immunosuppression [Unknown]
  - Diarrhoea [Unknown]
  - Sleep disorder due to general medical condition, insomnia type [Unknown]
  - Psoriatic arthropathy [Not Recovered/Not Resolved]

NARRATIVE: CASE EVENT DATE: 20151220
